FAERS Safety Report 5788699-9 (Version None)
Quarter: 2008Q2

REPORT INFORMATION
  Report Type: 
  Country: None (occurrence: None)
  Receive Date: 20080618
  Receipt Date: 20071114
  Transmission Date: 20081010
  Serious: Yes (Other)
  Sender: FDA-Public Use
  Company Number: 200718121US

PATIENT
  Age: 75 Year
  Sex: Male

DRUGS (3)
  1. LANTUS [Suspect]
     Indication: TYPE 2 DIABETES MELLITUS
     Dosage: QPM INJ
     Dates: start: 20050101
  2. NOVOLOG [Suspect]
     Indication: TYPE 2 DIABETES MELLITUS
  3. METOPROLOL SUCCINATE (TOPROL) [Concomitant]

REACTIONS (6)
  - DRUG INEFFECTIVE [None]
  - HEADACHE [None]
  - HYPERGLYCAEMIA [None]
  - HYPERHIDROSIS [None]
  - HYPOGLYCAEMIA [None]
  - TREMOR [None]
